FAERS Safety Report 10570171 (Version 1)
Quarter: 2014Q4

REPORT INFORMATION
  Report Type: Spontaneous
  Country: ES (occurrence: None)
  Receive Date: 20141105
  Receipt Date: 20141105
  Transmission Date: 20150529
  Serious: Yes (Hospitalization)
  Sender: FDA-Public Use
  Company Number: VAL_03504_2014

PATIENT
  Age: 62 Year
  Sex: Male

DRUGS (2)
  1. CARBAMAZEPINE (CARBAMAZEPINE) [Suspect]
     Active Substance: CARBAMAZEPINE
     Indication: BIPOLAR DISORDER
  2. LITHIUM [Suspect]
     Active Substance: LITHIUM CARBONATE
     Indication: BIPOLAR DISORDER

REACTIONS (2)
  - Extrapyramidal disorder [None]
  - Drug interaction [None]
